FAERS Safety Report 9212541 (Version 1)
Quarter: 2013Q2

REPORT INFORMATION
  Report Type: Spontaneous
  Country: US (occurrence: US)
  Receive Date: 20130405
  Receipt Date: 20130405
  Transmission Date: 20140414
  Serious: No
  Sender: FDA-Public Use
  Company Number: US-009507513-1304USA000657

PATIENT
  Sex: Male

DRUGS (1)
  1. DULERA [Suspect]
     Dosage: 1 PUFF TWICE A DAY
     Route: 055
     Dates: start: 201103

REACTIONS (3)
  - Device malfunction [Unknown]
  - Expired drug administered [Unknown]
  - No adverse event [Unknown]
